FAERS Safety Report 8180542-6 (Version None)
Quarter: 2012Q1

REPORT INFORMATION
  Report Type: 
  Country: None (occurrence: None)
  Receive Date: 20120302
  Receipt Date: 20120222
  Transmission Date: 20120608
  Serious: Yes (Hospitalization)
  Sender: FDA-Public Use
  Company Number: DE-JNJFOC-20120211372

PATIENT
  Age: 34 Year
  Sex: Male

DRUGS (9)
  1. ZYPREXA [Concomitant]
     Route: 048
     Dates: start: 20111028, end: 20111031
  2. RISPERDAL [Suspect]
     Route: 048
     Dates: start: 20111120, end: 20111124
  3. ZYPREXA [Concomitant]
     Route: 048
     Dates: start: 20111022, end: 20111027
  4. RISPERDAL [Suspect]
     Indication: PSYCHOTIC DISORDER
     Route: 048
     Dates: start: 20111205
  5. ZYPREXA [Concomitant]
     Route: 048
     Dates: start: 20111119, end: 20111123
  6. ZYPREXA [Concomitant]
     Route: 048
     Dates: start: 20111101, end: 20111115
  7. RISPERDAL [Suspect]
     Route: 048
     Dates: start: 20111114, end: 20111119
  8. RISPERDAL [Suspect]
     Route: 048
     Dates: start: 20111125, end: 20111204
  9. ZYPREXA [Concomitant]
     Route: 048
     Dates: start: 20111116, end: 20111118

REACTIONS (2)
  - DEPRESSION [None]
  - SUICIDAL IDEATION [None]
